FAERS Safety Report 6867197-5 (Version None)
Quarter: 2010Q3

REPORT INFORMATION
  Report Type: 
  Country: None (occurrence: None)
  Receive Date: 20100722
  Receipt Date: 20100714
  Transmission Date: 20110219
  Serious: Yes (Other)
  Sender: FDA-Public Use
  Company Number: B0664668A

PATIENT
  Sex: Female

DRUGS (7)
  1. SERETIDE [Suspect]
     Indication: ASTHMA
     Dosage: 500MCG PER DAY
     Route: 055
     Dates: start: 20100510, end: 20100701
  2. NORVASC [Concomitant]
     Route: 048
     Dates: start: 19970101
  3. ZYRTEC [Concomitant]
     Route: 048
     Dates: start: 19970101
  4. FLUITRAN [Concomitant]
     Route: 048
     Dates: start: 19970101
  5. ASTHMOLYSINE-D [Concomitant]
     Route: 048
     Dates: start: 20060101
  6. ZANTAC [Concomitant]
     Route: 048
     Dates: start: 20070101
  7. GANATON [Concomitant]
     Route: 048
     Dates: start: 20070101

REACTIONS (1)
  - DERMATITIS BULLOUS [None]
